FAERS Safety Report 19156461 (Version 1)
Quarter: 2021Q2

REPORT INFORMATION
  Report Type: Spontaneous
  Country: US (occurrence: US)
  Receive Date: 20210420
  Receipt Date: 20210420
  Transmission Date: 20210717
  Serious: Yes (Hospitalization, Other)
  Sender: FDA-Public Use
  Company Number: US-SA-2021SA120192

PATIENT
  Age: 53 Year
  Sex: Female

DRUGS (17)
  1. PIOGLITAZONE HYDROCHLORIDE. [Concomitant]
     Active Substance: PIOGLITAZONE HYDROCHLORIDE
  2. PRAZOSIN [PRAZOSIN HYDROCHLORIDE] [Concomitant]
     Active Substance: PRAZOSIN HYDROCHLORIDE
  3. AMBIEN [Suspect]
     Active Substance: ZOLPIDEM TARTRATE
     Route: 065
     Dates: end: 202102
  4. XANAX [Concomitant]
     Active Substance: ALPRAZOLAM
  5. COGENTIN [Concomitant]
     Active Substance: BENZTROPINE MESYLATE
  6. LAMICTAL [Concomitant]
     Active Substance: LAMOTRIGINE
  7. REQUIP [Concomitant]
     Active Substance: ROPINIROLE HYDROCHLORIDE
  8. VESICARE [Concomitant]
     Active Substance: SOLIFENACIN SUCCINATE
  9. LIPITOR [Concomitant]
     Active Substance: ATORVASTATIN CALCIUM
  10. NORVASC [Concomitant]
     Active Substance: AMLODIPINE BESYLATE
  11. REGLAN [Concomitant]
     Active Substance: METOCLOPRAMIDE HYDROCHLORIDE
  12. ZANTAC [Concomitant]
     Active Substance: RANITIDINE HYDROCHLORIDE
  13. IZOFRAN [ONDANSETRON] [Concomitant]
  14. PREVACID [Concomitant]
     Active Substance: LANSOPRAZOLE
  15. CLARITIN [Concomitant]
     Active Substance: LORATADINE
  16. MOBIC [Concomitant]
     Active Substance: MELOXICAM
  17. PILOCARPINE. [Concomitant]
     Active Substance: PILOCARPINE

REACTIONS (11)
  - White blood cell count increased [Unknown]
  - Balance disorder [Unknown]
  - Fall [Unknown]
  - Encephalopathy [Unknown]
  - Off label use [Unknown]
  - Dysstasia [Unknown]
  - Blood potassium decreased [Unknown]
  - Asthenia [Unknown]
  - Confusional state [Unknown]
  - Muscular weakness [Unknown]
  - Dizziness [Unknown]

NARRATIVE: CASE EVENT DATE: 20210209
